FAERS Safety Report 4764691-8 (Version None)
Quarter: 2005Q3

REPORT INFORMATION
  Report Type: 
  Country: None (occurrence: None)
  Receive Date: 20050909
  Receipt Date: 20050510
  Transmission Date: 20060218
  Serious: Yes (Hospitalization)
  Sender: FDA-Public Use
  Company Number: US-MERCK-0505USA01522

PATIENT
  Age: 49 Year
  Sex: Male
  Weight: 136 kg

DRUGS (5)
  1. VIOXX [Suspect]
     Indication: ARTHRITIS
     Route: 048
     Dates: start: 20030301, end: 20041101
  2. IBUPROFEN [Concomitant]
     Indication: ARTHRITIS
     Route: 065
  3. GLUCOPHAGE [Concomitant]
     Indication: DIABETES MELLITUS
     Route: 065
  4. NOVOLIN N [Concomitant]
     Indication: DIABETES MELLITUS
     Route: 065
  5. PLAVIX [Concomitant]
     Route: 065

REACTIONS (6)
  - ARTERIOPATHIC DISEASE [None]
  - CORONARY ARTERY DISEASE [None]
  - CORONARY ARTERY STENOSIS [None]
  - HYPOTENSION [None]
  - MYOCARDIAL ISCHAEMIA [None]
  - VENTRICULAR DYSFUNCTION [None]
